FAERS Safety Report 24083616 (Version 1)
Quarter: 2024Q3

REPORT INFORMATION
  Report Type: Spontaneous
  Country: US (occurrence: US)
  Receive Date: 20240712
  Receipt Date: 20240712
  Transmission Date: 20241016
  Serious: No
  Sender: BAYER
  Company Number: US-BAYER-2024A095540

PATIENT
  Age: 54 Year
  Sex: Female

DRUGS (1)
  1. CLIMARA PRO [Suspect]
     Active Substance: ESTRADIOL\LEVONORGESTREL
     Indication: Menopausal symptoms
     Dosage: UNK
     Route: 062
     Dates: start: 20240213

REACTIONS (2)
  - Device adhesion issue [None]
  - Anxiety [None]

NARRATIVE: CASE EVENT DATE: 20240305
